FAERS Safety Report 17533620 (Version 1)
Quarter: 2020Q1

REPORT INFORMATION
  Report Type: Spontaneous
  Country: US (occurrence: US)
  Receive Date: 20200312
  Receipt Date: 20200312
  Transmission Date: 20200409
  Serious: Yes (Hospitalization)
  Sender: FDA-Public Use
  Company Number: None

PATIENT
  Age: 82 Year
  Sex: Female

DRUGS (1)
  1. FAMOTIDINE. [Suspect]
     Active Substance: FAMOTIDINE
     Route: 048
     Dates: start: 20191123, end: 20200123

REACTIONS (2)
  - Heart rate decreased [None]
  - Heart rate increased [None]

NARRATIVE: CASE EVENT DATE: 20200117
